FAERS Safety Report 12693189 (Version 7)
Quarter: 2018Q1

REPORT INFORMATION
  Report Type: Report from Study
  Country: DE (occurrence: DE)
  Receive Date: 20160829
  Receipt Date: 20180323
  Transmission Date: 20180508
  Serious: Yes (Death, Hospitalization)
  Sender: FDA-Public Use
  Company Number: DE-ROCHE-1821237

PATIENT
  Age: 69 Year
  Sex: Male
  Weight: 70 kg

DRUGS (7)
  1. ALLOPURINOL. [Concomitant]
     Active Substance: ALLOPURINOL
     Route: 065
     Dates: start: 20160330
  2. BRENTUXIMAB VEDOTIN [Suspect]
     Active Substance: BRENTUXIMAB VEDOTIN
     Indication: PRODUCT USED FOR UNKNOWN INDICATION
     Route: 065
     Dates: start: 20160909
  3. DELIX (GERMANY) [Concomitant]
  4. OBINUTUZUMAB. [Suspect]
     Active Substance: OBINUTUZUMAB
     Indication: DIFFUSE LARGE B-CELL LYMPHOMA
     Dosage: DATE OF MOST RECENT DOSE 900 MG PRIOR TO SERIOUS ADVERSE EVENT (SAE) 17/AUG/2016.
     Route: 042
     Dates: start: 20160816, end: 20160824
  5. PIXANTRONE [Suspect]
     Active Substance: PIXANTRONE
     Indication: DIFFUSE LARGE B-CELL LYMPHOMA
     Dosage: PER INFUSION
     Route: 065
     Dates: start: 20160816, end: 20160816
  6. ASPIRIN. [Concomitant]
     Active Substance: ASPIRIN
     Route: 065
     Dates: start: 20160824, end: 20160827
  7. PANTOZOL [Concomitant]
     Active Substance: PANTOPRAZOLE SODIUM
     Route: 065
     Dates: start: 20160330

REACTIONS (5)
  - Acute myocardial infarction [Recovering/Resolving]
  - Bicytopenia [Not Recovered/Not Resolved]
  - Asthenia [Not Recovered/Not Resolved]
  - Sepsis [Not Recovered/Not Resolved]
  - Pneumonia [Fatal]

NARRATIVE: CASE EVENT DATE: 20160824
